FAERS Safety Report 13021305 (Version 1)
Quarter: 2016Q4

REPORT INFORMATION
  Report Type: Spontaneous
  Country: CN (occurrence: CN)
  Receive Date: 20161213
  Receipt Date: 20161213
  Transmission Date: 20170207
  Serious: Yes (Other)
  Sender: FDA-Public Use
  Company Number: CN-ASTRAZENECA-2016SF30749

PATIENT
  Age: 24107 Day
  Sex: Male

DRUGS (2)
  1. BUDESONIDE POWDER FOR INHALATION [Suspect]
     Active Substance: BUDESONIDE
     Indication: CHRONIC OBSTRUCTIVE PULMONARY DISEASE
     Dosage: DOSING UNKNOWN
     Route: 055
     Dates: start: 20160809, end: 20160809
  2. TERBUTALINE [Concomitant]
     Active Substance: TERBUTALINE
     Route: 065

REACTIONS (3)
  - Cyanosis [Recovering/Resolving]
  - Chest discomfort [Recovering/Resolving]
  - Asthma [Recovering/Resolving]

NARRATIVE: CASE EVENT DATE: 20160809
